FAERS Safety Report 15014633 (Version 2)
Quarter: 2018Q4

REPORT INFORMATION
  Report Type: Spontaneous
  Country: JP (occurrence: JP)
  Receive Date: 20180615
  Receipt Date: 20181214
  Transmission Date: 20190204
  Serious: Yes (Death)
  Sender: FDA-Public Use
  Company Number: JP-ACTELION-A-CH2018-173714

PATIENT
  Age: 67 Year
  Sex: Male

DRUGS (10)
  1. KANAMYCIN [Concomitant]
     Active Substance: KANAMYCIN\KANAMYCIN A SULFATE
  2. TRAZENTA [Concomitant]
     Active Substance: LINAGLIPTIN
  3. PORTOLAC [Concomitant]
     Active Substance: LACTITOL
  4. AMINOLEBAN EN [Concomitant]
     Active Substance: UNSPECIFIED INGREDIENT
  5. SPIRONOLACTONE. [Concomitant]
     Active Substance: SPIRONOLACTONE
  6. AMINOLEBAN [Concomitant]
     Active Substance: AMINO ACIDS
  7. PARIET [Concomitant]
     Active Substance: RABEPRAZOLE SODIUM
  8. LASIX [Concomitant]
     Active Substance: FUROSEMIDE
  9. OPSUMIT [Suspect]
     Active Substance: MACITENTAN
     Indication: PORTOPULMONARY HYPERTENSION
     Dosage: 2.5 MG, BID
     Route: 048
     Dates: start: 20170629, end: 20170701
  10. OPSUMIT [Suspect]
     Active Substance: MACITENTAN
     Dosage: 5 MG, BID
     Route: 048
     Dates: start: 20170702, end: 20180314

REACTIONS (4)
  - Hepatic failure [Fatal]
  - Hepatic function abnormal [Fatal]
  - Cardio-respiratory arrest [Fatal]
  - Papilloma [Unknown]

NARRATIVE: CASE EVENT DATE: 201710
